FAERS Safety Report 6842463-8 (Version None)
Quarter: 2010Q3

REPORT INFORMATION
  Report Type: 
  Country: None (occurrence: None)
  Receive Date: 20100709
  Receipt Date: 20100701
  Transmission Date: 20110219
  Serious: Yes (Other)
  Sender: FDA-Public Use
  Company Number: AXC-2010-000180

PATIENT
  Age: 77 Year
  Sex: Female

DRUGS (4)
  1. VIOKASE 16 [Suspect]
     Indication: PANCREATITIS
     Dosage: 2 TABLETS WITH MEAL, ORAL; 4 TABLETS WITH MEAL, ORAL; 1 TABLET WITH MEAL, ORAL
     Route: 048
     Dates: start: 20100601, end: 20100601
  2. VIOKASE 16 [Suspect]
     Indication: PANCREATITIS
     Dosage: 2 TABLETS WITH MEAL, ORAL; 4 TABLETS WITH MEAL, ORAL; 1 TABLET WITH MEAL, ORAL
     Route: 048
     Dates: start: 20100601, end: 20100601
  3. VIOKASE 16 [Suspect]
     Indication: PANCREATITIS
     Dosage: 2 TABLETS WITH MEAL, ORAL; 4 TABLETS WITH MEAL, ORAL; 1 TABLET WITH MEAL, ORAL
     Route: 048
     Dates: start: 20100601, end: 20100601
  4. VIOKASE 16 [Suspect]
     Indication: PANCREATITIS
     Dosage: 2 TABLETS WITH MEAL, ORAL; 4 TABLETS WITH MEAL, ORAL; 1 TABLET WITH MEAL, ORAL
     Route: 048
     Dates: start: 20100601, end: 20100630

REACTIONS (1)
  - HALLUCINATION, VISUAL [None]
